FAERS Safety Report 6176833-0 (Version None)
Quarter: 2009Q2

REPORT INFORMATION
  Report Type: 
  Country: None (occurrence: None)
  Receive Date: 20090501
  Receipt Date: 20090422
  Transmission Date: 20091009
  Serious: Yes (Hospitalization, Other)
  Sender: FDA-Public Use
  Company Number: PHBS2007BR12013

PATIENT
  Sex: Female
  Weight: 85 kg

DRUGS (10)
  1. GALVUS [Suspect]
     Indication: DIABETES MELLITUS
     Dosage: 100 MG IN THE MORNING
     Route: 048
     Dates: start: 20070601, end: 20071101
  2. METFORMIN HCL [Suspect]
     Indication: DIABETES MELLITUS
     Dosage: 850 MG, BID
     Route: 048
     Dates: start: 20070601, end: 20071101
  3. BUFERIN [Concomitant]
     Indication: ANTICOAGULANT THERAPY
     Dosage: 81 MG, QD
     Route: 048
  4. EUTHYROX [Concomitant]
     Indication: HYPOTHYROIDISM
     Dosage: 125 MG, QD
     Route: 048
  5. LANTUS [Concomitant]
     Indication: DIABETES MELLITUS
     Dosage: 22 IU, QD
  6. NOVORAPID [Concomitant]
     Dosage: 4UI IN THE MORNING AND 6UI IN THE LUNCH
  7. COZAAR [Concomitant]
     Indication: HYPERTENSION
     Dosage: 50 MG, QD
     Route: 048
  8. FINASTERIDE [Concomitant]
     Dosage: 1 MG, QD
     Route: 048
  9. DYTORIN [Concomitant]
     Dosage: 0.5 DF, QD
     Route: 048
  10. DALMADORM [Concomitant]
     Indication: SLEEP DISORDER
     Dosage: 0.5 DF, QD
     Route: 048

REACTIONS (6)
  - DRUG INEFFECTIVE [None]
  - GASTRIC OPERATION [None]
  - HYPOGLYCAEMIC COMA [None]
  - HYPOTHERMIA [None]
  - INADEQUATE DIET [None]
  - WEIGHT DECREASED [None]
